FAERS Safety Report 8420235-0 (Version None)
Quarter: 2012Q2

REPORT INFORMATION
  Report Type: 
  Country: None (occurrence: None)
  Receive Date: 20120607
  Receipt Date: 20120531
  Transmission Date: 20120825
  Serious: Yes (Death)
  Sender: FDA-Public Use
  Company Number: US-PFIZER INC-2012114762

PATIENT
  Sex: Female
  Weight: 76.644 kg

DRUGS (24)
  1. MEDROL [Concomitant]
     Indication: GOUT
     Dosage: 4 MG, UNK
     Dates: start: 20110302, end: 20110309
  2. BENICAR HCT [Concomitant]
     Dosage: 20/125 MG
     Dates: start: 20060802
  3. NORVASC [Concomitant]
     Dosage: 10 MG, UNK
     Dates: start: 20070606
  4. METFORMIN [Concomitant]
     Indication: TYPE 2 DIABETES MELLITUS
     Dosage: 500 MG, UNK
     Dates: start: 20010101
  5. ACETAMINOPHEN [Concomitant]
     Dosage: 500 MG, UNK
     Dates: start: 19900101
  6. IBUPROFEN (ADVIL) [Concomitant]
     Dosage: UNK
     Dates: start: 19980101, end: 20100304
  7. VITAMIN B-12 [Concomitant]
     Dosage: 200 UG, UNK
     Dates: start: 20070101
  8. PROLACTIN [Concomitant]
     Dosage: TT TBS
     Dates: start: 19900101
  9. NEURONTIN [Concomitant]
     Indication: DIABETIC NEUROPATHY
     Dosage: 100 MG, UNK
     Dates: start: 20100622, end: 20100813
  10. GLYBURIDE AND METFORMIN HYDROCHLORIDE [Concomitant]
     Dosage: 30 MG, UNK
     Dates: start: 20090913
  11. TYLENOL ARTHRITIS [Concomitant]
     Indication: ARTHRALGIA
     Dosage: 650 MG, UNK
     Dates: start: 20110901
  12. SYNTHROID [Concomitant]
     Dosage: 50 UG, UNK
     Dates: start: 20090616
  13. TRAVATAN [Concomitant]
     Dosage: TGTT/UL
     Dates: start: 19800101
  14. NEXIUM [Concomitant]
     Indication: PROPHYLAXIS
     Dosage: UNK MG, QD
     Route: 048
     Dates: start: 20100310, end: 20110110
  15. IBUPROFEN [Suspect]
     Indication: OSTEOARTHRITIS
     Dosage: 800 MG, 3X/DAY
     Route: 048
     Dates: start: 20100310, end: 20110110
  16. MIRALAX [Concomitant]
     Indication: CONSTIPATION
     Dosage: 17 G, UNK
     Dates: start: 20101022
  17. PRAVASTATIN [Concomitant]
     Indication: HYPERLIPIDAEMIA
     Dosage: 20 MG, UNK
     Dates: start: 20060802
  18. ALPHAGAN [Concomitant]
     Dosage: TGTT/OS
     Dates: start: 19800101
  19. ACTOS [Concomitant]
     Indication: DIABETES MELLITUS
     Dosage: 30 MG, UNK
     Dates: start: 20110301
  20. INSULIN GLARGINE [Concomitant]
     Indication: TYPE 2 DIABETES MELLITUS
     Dosage: 100 IU, UNK
     Dates: start: 20000101
  21. INSULIN GLARGINE [Concomitant]
     Dosage: UNK
     Dates: start: 20080101
  22. VICODIN [Concomitant]
     Indication: NECK PAIN
     Dosage: 5/500
     Dates: start: 20100622, end: 20100813
  23. ASPIRIN [Concomitant]
     Dosage: 81 MG, UNK
     Dates: start: 20010101
  24. TIMOLOL [Concomitant]
     Dosage: TGTT/OU
     Dates: start: 19800101

REACTIONS (1)
  - SUDDEN DEATH [None]
